FAERS Safety Report 4711676-3 (Version None)
Quarter: 2005Q3

REPORT INFORMATION
  Report Type: 
  Country: None (occurrence: None)
  Receive Date: 20050708
  Receipt Date: 20050627
  Transmission Date: 20060218
  Serious: Yes (Hospitalization, Other)
  Sender: FDA-Public Use
  Company Number: 2005094171

PATIENT
  Age: 48 Year
  Sex: Male
  Weight: 81.6475 kg

DRUGS (2)
  1. BEXTRA [Suspect]
     Indication: ARTHRITIS
     Dosage: (2 IN 1 D)
     Dates: start: 20020101, end: 20040101
  2. BEXTRA [Suspect]
     Indication: BACK PAIN
     Dosage: (2 IN 1 D)
     Dates: start: 20020101, end: 20040101

REACTIONS (5)
  - BACK PAIN [None]
  - CEREBROVASCULAR ACCIDENT [None]
  - DEPRESSION [None]
  - FALL [None]
  - HYPERTENSION [None]
